FAERS Safety Report 9304330 (Version 1)
Quarter: 2013Q2

REPORT INFORMATION
  Report Type: Spontaneous
  Country: BR (occurrence: BR)
  Receive Date: 20130522
  Receipt Date: 20130522
  Transmission Date: 20140414
  Serious: Yes (Hospitalization, Other)
  Sender: FDA-Public Use
  Company Number: BR-PFIZER INC-2013151734

PATIENT
  Age: 80 Year
  Sex: Female
  Weight: 72 kg

DRUGS (1)
  1. XALATAN [Suspect]
     Indication: CATARACT
     Dosage: ONE DROP IN LEFT EYE (1.5UG) TWICE DAILY
     Route: 047
     Dates: start: 2008

REACTIONS (12)
  - Cataract [Unknown]
  - Cerebrovascular accident [Unknown]
  - Cerebrovascular accident [Unknown]
  - Cerebrovascular accident [Unknown]
  - Nosocomial infection [Unknown]
  - Cognitive disorder [Unknown]
  - Sensory loss [Unknown]
  - Movement disorder [Unknown]
  - Dysphagia [Unknown]
  - Speech disorder [Unknown]
  - Off label use [Not Recovered/Not Resolved]
  - Incorrect dose administered [Not Recovered/Not Resolved]
